FAERS Safety Report 9601427 (Version 2)
Quarter: 2013Q4

REPORT INFORMATION
  Report Type: Spontaneous
  Country: US (occurrence: US)
  Receive Date: 20131007
  Receipt Date: 20131119
  Transmission Date: 20140711
  Serious: Yes (Death, Hospitalization)
  Sender: FDA-Public Use
  Company Number: US-BIOGENIDEC-2013BI095576

PATIENT
  Sex: Female

DRUGS (12)
  1. AVONEX [Suspect]
     Indication: MULTIPLE SCLEROSIS
     Route: 030
     Dates: start: 20130129
  2. ACTONEL [Concomitant]
  3. BLACK COHOSH [Concomitant]
  4. CALCIUM 600 [Concomitant]
  5. CELEBREX [Concomitant]
  6. GABAPENTIN [Concomitant]
  7. HYDROCHLOROTHIAZIDE [Concomitant]
  8. LEVOTHROID [Concomitant]
  9. RANITIDINE HCL [Concomitant]
  10. SYNTHROID [Concomitant]
  11. TRIAMTERENE-HCTZ [Concomitant]
  12. VESICARE [Concomitant]

REACTIONS (1)
  - Lung cancer metastatic [Fatal]
